FAERS Safety Report 9728432 (Version 1)
Quarter: 2013Q4

REPORT INFORMATION
  Report Type: Spontaneous
  Country: JP (occurrence: JP)
  Receive Date: 20131204
  Receipt Date: 20131204
  Transmission Date: 20140711
  Serious: Yes (Other)
  Sender: FDA-Public Use
  Company Number: JP-ASTELLAS-2013JP013222

PATIENT
  Age: 37 Year
  Sex: Female

DRUGS (5)
  1. TACROLIMUS [Suspect]
     Indication: LUPUS NEPHRITIS
     Route: 065
  2. PROPYLTHIOURACIL [Concomitant]
     Indication: BASEDOW^S DISEASE
     Route: 065
  3. CORTICOSTEROID NOS [Concomitant]
     Indication: SYSTEMIC LUPUS ERYTHEMATOSUS
     Route: 065
  4. CORTICOSTEROID NOS [Concomitant]
     Indication: LUPUS NEPHRITIS
     Route: 065
  5. CYCLOPHOSPHAMIDE [Concomitant]
     Indication: SYSTEMIC LUPUS ERYTHEMATOSUS
     Route: 065

REACTIONS (2)
  - Drug ineffective [Unknown]
  - Lupus nephritis [Recovering/Resolving]
